FAERS Safety Report 4659877-7 (Version None)
Quarter: 2005Q2

REPORT INFORMATION
  Report Type: 
  Country: None (occurrence: None)
  Receive Date: 20050502
  Receipt Date: 20050107
  Transmission Date: 20051028
  Serious: Yes (Hospitalization, Other)
  Sender: FDA-Public Use
  Company Number: US106801

PATIENT
  Age: 76 Year
  Sex: Male

DRUGS (10)
  1. EPOGEN [Suspect]
     Indication: RENAL FAILURE CHRONIC
     Dosage: 60000 IU, 1 IN 2 WEEKS, SC
     Route: 058
     Dates: start: 20030311
  2. PRAVASTATIN SODIUM [Concomitant]
  3. GLIPIZIDE [Concomitant]
  4. ISOSORBIDE MONONITRATE [Concomitant]
  5. ALLOPURINOL [Concomitant]
  6. TERAZOSIN HYDROCHLORIDE [Concomitant]
  7. MINOXIDIL [Concomitant]
  8. ATORVASTATIN CALCIUM [Concomitant]
  9. AMLODIPINE BESYLATE [Concomitant]
  10. IRON [Concomitant]

REACTIONS (5)
  - CARDIAC FAILURE CONGESTIVE [None]
  - DRUG INEFFECTIVE [None]
  - IRON DEFICIENCY [None]
  - PNEUMONIA [None]
  - WHITE BLOOD CELL COUNT INCREASED [None]
